FAERS Safety Report 16738968 (Version 1)
Quarter: 2019Q3

REPORT INFORMATION
  Report Type: Spontaneous
  Country: US (occurrence: US)
  Receive Date: 20190826
  Receipt Date: 20190826
  Transmission Date: 20191005
  Serious: No
  Sender: FDA-Public Use
  Company Number: US-ASTRAZENECA-2019SF18163

PATIENT
  Age: 45 Year
  Sex: Female

DRUGS (1)
  1. ZOMIG [Suspect]
     Active Substance: ZOLMITRIPTAN
     Indication: MIGRAINE
     Dosage: TAKE 1 SPRAY AS NEEDED FOR MIGRANE, MAY REPEAT IN 2 HOURS. DO NOT EXCEED 10 MG IN 24 HOURS UNKNOWN
     Route: 045

REACTIONS (1)
  - Weight decreased [Unknown]
